FAERS Safety Report 6073725-2 (Version None)
Quarter: 2009Q1

REPORT INFORMATION
  Report Type: 
  Country: None (occurrence: None)
  Receive Date: 20090211
  Receipt Date: 20090205
  Transmission Date: 20090719
  Serious: No
  Sender: FDA-Public Use
  Company Number: US-JNJFOC-20090202170

PATIENT
  Sex: Male
  Weight: 97.52 kg

DRUGS (3)
  1. DURAGESIC-100 [Suspect]
     Indication: NECK PAIN
     Route: 062
  2. FENTANYL TRANSDERMAL SYSTEM [Suspect]
     Indication: NECK PAIN
     Route: 062
  3. METHADONE HCL [Concomitant]
     Indication: PAIN
     Route: 048

REACTIONS (4)
  - DRUG INEFFECTIVE [None]
  - INCORRECT DRUG ADMINISTRATION DURATION [None]
  - MUSCLE TIGHTNESS [None]
  - NEURALGIA [None]
